FAERS Safety Report 6866880-5 (Version None)
Quarter: 2010Q2

REPORT INFORMATION
  Report Type: 
  Country: None (occurrence: None)
  Receive Date: 20100607
  Receipt Date: 20100419
  Transmission Date: 20101027
  Serious: No
  Sender: FDA-Public Use
  Company Number: 2010-00400

PATIENT
  Age: 57 Year
  Sex: Female
  Weight: 51.7101 kg

DRUGS (5)
  1. ZICAM COLD REMEDY RAPIDMELTS + VITAMIN C + ECHINACEA [Suspect]
     Indication: NASOPHARYNGITIS
     Dosage: EVERY 3 HOURS X 1 DAY
     Dates: start: 20100418, end: 20100419
  2. ZICAM ALLERGY RELIEF GEL SWABS [Suspect]
     Indication: NASOPHARYNGITIS
     Dosage: ONCE OR TWICE X 1 DAY
     Dates: start: 20100417, end: 20100419
  3. ZICAM COLD REMEDY NASAL GEL [Suspect]
     Indication: NASOPHARYNGITIS
     Dosage: BID X 1 DAY, 2 DOSES
     Dates: start: 20100417, end: 20100418
  4. ZICAM COLD REMEDY RAPIDMELTS + VITAMIN C + ECHINACEA [Suspect]
     Indication: NASOPHARYNGITIS
     Dosage: EVERY 3 HOURS, 1 DAY
     Dates: start: 20100417, end: 20100418
  5. ^LOTS OF HERBS^ [Concomitant]

REACTIONS (2)
  - AGEUSIA [None]
  - ANOSMIA [None]
